FAERS Safety Report 24996459 (Version 1)
Quarter: 2025Q1

REPORT INFORMATION
  Report Type: Spontaneous
  Country: US (occurrence: None)
  Receive Date: 20250221
  Receipt Date: 20250221
  Transmission Date: 20250409
  Serious: Yes (Other)
  Sender: FDA-CTU
  Company Number: None

PATIENT
  Age: 73 Year
  Sex: Female
  Weight: 58.5 kg

DRUGS (6)
  1. PROLIA [Suspect]
     Active Substance: DENOSUMAB
     Indication: Osteoporosis
     Route: 058
     Dates: start: 20180823, end: 20231023
  2. Elquis [Concomitant]
  3. VALSARTAN [Concomitant]
     Active Substance: VALSARTAN
  4. METOPROLOL [Concomitant]
     Active Substance: METOPROLOL
  5. FLECAINIDE [Concomitant]
     Active Substance: FLECAINIDE
  6. ROSUVASTATIN [Concomitant]
     Active Substance: ROSUVASTATIN

REACTIONS (2)
  - Spinal compression fracture [None]
  - Spinal compression fracture [None]

NARRATIVE: CASE EVENT DATE: 20240701
